FAERS Safety Report 5612662-1 (Version None)
Quarter: 2008Q1

REPORT INFORMATION
  Report Type: 
  Country: None (occurrence: None)
  Receive Date: 20080201
  Receipt Date: 20080201
  Transmission Date: 20080703
  Serious: No
  Sender: FDA-Public Use
  Company Number: None

PATIENT
  Sex: Female
  Weight: 77.5 kg

DRUGS (11)
  1. CISPLATIN [Suspect]
     Dosage: 94 MG
  2. DOXORUBICIN HYDROCHLORIDE [Suspect]
     Dosage: 84 MG
  3. TAXOL [Suspect]
     Dosage: 299 MG
  4. AVELOX [Concomitant]
  5. FLAGYL [Concomitant]
  6. GABAPENTIN [Concomitant]
  7. LASIX [Concomitant]
  8. LOVENOX [Concomitant]
  9. MAG OXIDE [Concomitant]
  10. PRANDIN [Concomitant]
  11. STARLIX [Concomitant]

REACTIONS (2)
  - FALL [None]
  - OEDEMA PERIPHERAL [None]
